FAERS Safety Report 7379587-5 (Version None)
Quarter: 2011Q1

REPORT INFORMATION
  Report Type: 
  Country: None (occurrence: None)
  Receive Date: 20110329
  Receipt Date: 20091112
  Transmission Date: 20110831
  Serious: No
  Sender: FDA-Public Use
  Company Number: 2009BI008819

PATIENT
  Sex: Female

DRUGS (2)
  1. TYSABRI [Suspect]
     Indication: MULTIPLE SCLEROSIS
     Route: 042
     Dates: start: 20061005, end: 20070531
  2. TYSABRI [Suspect]
     Route: 042
     Dates: start: 20070905

REACTIONS (10)
  - ABASIA [None]
  - SECRETION DISCHARGE [None]
  - MALAISE [None]
  - PAIN [None]
  - POOR VENOUS ACCESS [None]
  - OEDEMA PERIPHERAL [None]
  - SCOLIOSIS [None]
  - LOWER EXTREMITY MASS [None]
  - GAIT DISTURBANCE [None]
  - MOBILITY DECREASED [None]
